FAERS Safety Report 6874037-7 (Version None)
Quarter: 2010Q3

REPORT INFORMATION
  Report Type: 
  Country: None (occurrence: None)
  Receive Date: 20100723
  Receipt Date: 20100709
  Transmission Date: 20110219
  Serious: Yes (Disabling, Other)
  Sender: FDA-Public Use
  Company Number: RB-13202-2010

PATIENT
  Sex: Male
  Weight: 69 kg

DRUGS (1)
  1. SUBOXONE [Suspect]
     Indication: DRUG DEPENDENCE
     Dosage: (INTRAVENOUS), (8 MG SUBLINGUAL)
     Route: 060
     Dates: start: 20100118, end: 20100708

REACTIONS (4)
  - ANXIETY [None]
  - EUPHORIC MOOD [None]
  - IMPAIRED WORK ABILITY [None]
  - TRANCE [None]
